FAERS Safety Report 5933053-X (Version None)
Quarter: 2008Q4

REPORT INFORMATION
  Report Type: 
  Country: None (occurrence: None)
  Receive Date: 20081028
  Receipt Date: 20081015
  Transmission Date: 20090506
  Serious: Yes (Hospitalization)
  Sender: FDA-Public Use
  Company Number: FR-ELI_LILLY_AND_COMPANY-FR200809000844

PATIENT
  Age: 77 Year
  Sex: Male
  Weight: 76 kg

DRUGS (9)
  1. BYETTA [Suspect]
     Indication: DIABETES MELLITUS
     Dosage: 5 UG, 2/D
     Route: 058
     Dates: start: 20080620, end: 20080712
  2. BYETTA [Suspect]
     Dosage: 10 UG, 2/D
     Route: 058
     Dates: start: 20080713, end: 20080801
  3. GLUCOPHAGE [Concomitant]
     Indication: DIABETES MELLITUS
     Dosage: 3 G, DAILY (1/D)
     Route: 048
  4. AMARYL [Concomitant]
     Indication: DIABETES MELLITUS
     Dosage: 6 MG, DAILY (1/D)
     Route: 048
  5. FENOFIBRATE [Concomitant]
     Indication: HYPERLIPIDAEMIA
     Dosage: 100 MG, DAILY (1/D)
     Route: 048
  6. DILTIAZEM HCL [Concomitant]
     Indication: HYPERTENSION
     Dosage: 180 MG, DAILY (1/D)
     Route: 048
  7. MONICOR [Concomitant]
     Indication: CORONARY ARTERY DISEASE
     Dosage: 80 MG, DAILY (1/D)
     Route: 048
  8. FLECAINE [Concomitant]
     Indication: ARRHYTHMIA
     Dosage: 100 MG, DAILY (1/D)
     Route: 048
  9. ASPEGIC 325 [Concomitant]
     Indication: PLATELET AGGREGATION
     Dosage: 100 MG, DAILY (1/D)
     Route: 048

REACTIONS (1)
  - PANCREATIC CARCINOMA [None]
